FAERS Safety Report 9708470 (Version 2)
Quarter: 2013Q4

REPORT INFORMATION
  Report Type: Spontaneous
  Country: US (occurrence: None)
  Receive Date: 20131121
  Receipt Date: 20131231
  Transmission Date: 20140711
  Serious: Yes (Other)
  Sender: FDA-Public Use
  Company Number: AUR-APL-2013-09603

PATIENT
  Age: 62 Year
  Sex: Male

DRUGS (15)
  1. METFORMIN [Suspect]
     Indication: TYPE 2 DIABETES MELLITUS
     Dosage: 2000 MG (1000 MG, 2 IN 1 D)
  2. GLYNASE [Suspect]
     Indication: TYPE 2 DIABETES MELLITUS
     Dosage: 6 MG (3 MG,2 IN 1 D)
  3. VICTOZA [Suspect]
     Indication: TYPE 2 DIABETES MELLITUS
     Dosage: (1.8 MG), UNKNOWN
  4. LEVEMIR [Suspect]
     Indication: TYPE 2 DIABETES MELLITUS
     Dosage: 80 IU (80 IU, 1 IN 1 D), UNKNOWN
  5. GLYBURIDE (GLIBENCLAMIDE) [Concomitant]
  6. IMMUNOGLOBULINS (IMMUNOGLOBULINS) [Concomitant]
  7. LISINOPRIL (LISINOPRIL) [Concomitant]
  8. ACETYLSALICYLIC ACID (ACETYLSALICYLIC ACID) [Concomitant]
  9. ALPHAGAN (BRIMONIDINE TARTRATE) [Concomitant]
  10. NORVASC (AMLODIPINE BESILATE) [Concomitant]
  11. LIPITOR (ATORVASTATIN CALCIUM) [Concomitant]
  12. METOPROLOL TARTRATE (METOPROLOL TARTRATE) [Concomitant]
  13. NITROSTAT (GLYCERYL TRINITRATE) [Concomitant]
  14. HYDROCODONE W/ACETAMINOPHEN (VICODIN) [Concomitant]
  15. FLOMAX (MORNIFLUMATE) [Concomitant]

REACTIONS (3)
  - Wrong technique in drug usage process [None]
  - Glycosylated haemoglobin increased [None]
  - Treatment noncompliance [None]
